FAERS Safety Report 6456673-5 (Version None)
Quarter: 2009Q4

REPORT INFORMATION
  Report Type: 
  Country: None (occurrence: None)
  Receive Date: 20091125
  Receipt Date: 20090611
  Transmission Date: 20100525
  Serious: No
  Sender: FDA-Public Use
  Company Number: A0790416A

PATIENT
  Age: 81 Year
  Sex: Male

DRUGS (3)
  1. LANOXIN [Suspect]
     Indication: ARRHYTHMIA
     Dosage: .125MG PER DAY
     Route: 048
     Dates: start: 20080501
  2. COZAAR [Concomitant]
  3. LOVASTATIN [Concomitant]

REACTIONS (2)
  - ARRHYTHMIA [None]
  - MIDDLE INSOMNIA [None]
